FAERS Safety Report 6730720-5 (Version None)
Quarter: 2010Q2

REPORT INFORMATION
  Report Type: 
  Country: None (occurrence: None)
  Receive Date: 20100518
  Receipt Date: 20100511
  Transmission Date: 20101027
  Serious: Yes (Death, Other)
  Sender: FDA-Public Use
  Company Number: GT-BAYER-201014443LA

PATIENT
  Age: 24 Year
  Sex: Female
  Weight: 53 kg

DRUGS (3)
  1. YASMIN [Suspect]
     Indication: ORAL CONTRACEPTION
     Route: 048
     Dates: start: 20090808, end: 20090901
  2. YASMIN [Suspect]
     Route: 048
     Dates: start: 20091223
  3. INTRAUTERINE DEVICE [Concomitant]
     Indication: CONTRACEPTION
     Route: 015
     Dates: start: 20090926, end: 20091218

REACTIONS (2)
  - MENSTRUATION DELAYED [None]
  - PULMONARY EMBOLISM [None]
